FAERS Safety Report 24351488 (Version 1)
Quarter: 2024Q3

REPORT INFORMATION
  Report Type: Report from Study
  Country: RO (occurrence: RO)
  Receive Date: 20240923
  Receipt Date: 20240923
  Transmission Date: 20241017
  Serious: No
  Sender: ROCHE
  Company Number: RO-ROCHE-2519514

PATIENT
  Age: 59 Year
  Sex: Female
  Weight: 55.0 kg

DRUGS (7)
  1. HERCEPTIN [Suspect]
     Active Substance: TRASTUZUMAB
     Indication: HER2 positive breast cancer
     Route: 042
     Dates: start: 20180813
  2. CYTOXAN [Suspect]
     Active Substance: CYCLOPHOSPHAMIDE
     Indication: HER2 positive breast cancer
     Route: 042
     Dates: start: 20180618, end: 20180730
  3. ADRIAMYCIN [Suspect]
     Active Substance: DOXORUBICIN HYDROCHLORIDE
     Indication: HER2 positive breast cancer
     Route: 042
     Dates: start: 20180618, end: 20180730
  4. TAXOL [Suspect]
     Active Substance: PACLITAXEL
     Indication: HER2 positive breast cancer
     Route: 042
     Dates: start: 20180813
  5. ARIMIDEX [Suspect]
     Active Substance: ANASTROZOLE
     Indication: HER2 positive breast cancer
     Route: 048
     Dates: start: 20190206, end: 20190304
  6. AROMASIN [Suspect]
     Active Substance: EXEMESTANE
     Indication: HER2 positive breast cancer
     Route: 048
     Dates: start: 20190304, end: 20190304
  7. NOLVADEX [Concomitant]
     Active Substance: TAMOXIFEN CITRATE
     Indication: Breast cancer
     Dosage: B.I.D. - TWICE DAILY
     Route: 048
     Dates: start: 20190408

REACTIONS (4)
  - Haemoptysis [Recovered/Resolved]
  - Epistaxis [Recovered/Resolved]
  - Fatigue [Recovered/Resolved]
  - Arthralgia [Recovered/Resolved]

NARRATIVE: CASE EVENT DATE: 20190304
